FAERS Safety Report 13386267 (Version 1)
Quarter: 2017Q1

REPORT INFORMATION
  Report Type: Spontaneous
  Country: AT (occurrence: AT)
  Receive Date: 20170330
  Receipt Date: 20170330
  Transmission Date: 20170429
  Serious: Yes (Other)
  Sender: FDA-Public Use
  Company Number: AT-ACCORD-049666

PATIENT
  Sex: Male
  Weight: 63 kg

DRUGS (8)
  1. ATARAX [Concomitant]
     Active Substance: HYDROXYZINE HYDROCHLORIDE
     Dosage: STRENGTH: 25 MG. 0-1-1
  2. PRAXITEN [Concomitant]
     Active Substance: OXAZEPAM
     Dosage: 0-1-1
  3. MIRTAZAPINE. [Concomitant]
     Active Substance: MIRTAZAPINE
     Dosage: 0-0-1
  4. ZOLPIDEM [Concomitant]
     Active Substance: ZOLPIDEM\ZOLPIDEM TARTRATE
     Dosage: 0-0-1
  5. DOMINAL (PROTHIPENDYL HYDROCHLORIDE) [Concomitant]
     Active Substance: PROTHIPENDYL HYDROCHLORIDE
     Dosage: 0-0-2
  6. TRUXAL [Concomitant]
     Active Substance: CHLORPROTHIXENE
     Dosage: 1-1-4?STRENGTH: 50 MG
  7. SERTRALINE [Concomitant]
     Active Substance: SERTRALINE HYDROCHLORIDE
     Dosage: 2-0-0
  8. QUETIAPINE ACCORD [Suspect]
     Active Substance: QUETIAPINE
     Indication: PRODUCT USED FOR UNKNOWN INDICATION
     Dosage: 0-0-1

REACTIONS (12)
  - Dizziness postural [Recovering/Resolving]
  - Restless legs syndrome [Recovering/Resolving]
  - Restlessness [Recovering/Resolving]
  - Depression [Recovering/Resolving]
  - Dyspnoea [Recovering/Resolving]
  - Trismus [Recovering/Resolving]
  - Weight decreased [Recovering/Resolving]
  - Anxiety disorder [Recovered/Resolved]
  - Headache [Recovering/Resolving]
  - Suicidal ideation [Recovering/Resolving]
  - Dyskinesia [Recovering/Resolving]
  - Eye movement disorder [Recovered/Resolved]
